FAERS Safety Report 5692439-1 (Version None)
Quarter: 2008Q2

REPORT INFORMATION
  Report Type: 
  Country: None (occurrence: None)
  Receive Date: 20080402
  Receipt Date: 20070904
  Transmission Date: 20081010
  Serious: Yes (Hospitalization)
  Sender: FDA-Public Use
  Company Number: US-BAYER-US-2007-033451

PATIENT
  Age: 61 Year
  Sex: Female
  Weight: 91 kg

DRUGS (14)
  1. LEUKINE [Suspect]
     Indication: PROPHYLAXIS
     Dosage: UNIT DOSE: 450 ?G
     Route: 058
     Dates: start: 20070830, end: 20070830
  2. PROTONIX [Concomitant]
  3. METFORMIN HCL [Concomitant]
  4. ZETIA [Concomitant]
  5. HYZAAR [Concomitant]
  6. TOPROL-XL [Concomitant]
  7. PRAVASTATIN [Concomitant]
  8. ALBUTEROL [Concomitant]
  9. HYDROCHLOROTHIAZIDE [Concomitant]
  10. PERCOCET [Concomitant]
  11. PROMETHAZINE [Concomitant]
  12. LORTAB [Concomitant]
  13. LYRICA [Concomitant]
  14. SYMTIN [Concomitant]

REACTIONS (6)
  - FAECAL INCONTINENCE [None]
  - HYPOTENSION [None]
  - NAUSEA [None]
  - OXYGEN SATURATION DECREASED [None]
  - UNEVALUABLE EVENT [None]
  - VOMITING [None]
